FAERS Safety Report 4853201-2 (Version None)
Quarter: 2005Q4

REPORT INFORMATION
  Report Type: 
  Country: None (occurrence: None)
  Receive Date: 20051214
  Receipt Date: 20051205
  Transmission Date: 20060501
  Serious: Yes (Death, Hospitalization)
  Sender: FDA-Public Use
  Company Number: FR-ROCHE-427633

PATIENT
  Age: 75 Year
  Sex: Male
  Weight: 65 kg

DRUGS (9)
  1. ROCEPHIN [Suspect]
     Route: 042
     Dates: start: 20051111, end: 20051116
  2. OFLOCET [Suspect]
     Route: 042
     Dates: start: 20051111, end: 20051116
  3. PERFALGAN [Suspect]
     Indication: HORMONE REPLACEMENT THERAPY
     Route: 042
     Dates: start: 20051109, end: 20051116
  4. CALCIUM GLUCONATE [Suspect]
     Indication: HORMONE REPLACEMENT THERAPY
     Route: 065
     Dates: start: 20051109
  5. FLAGYL [Suspect]
     Route: 042
     Dates: start: 20051111, end: 20051116
  6. SOPROL [Suspect]
     Indication: DRUG USE FOR UNKNOWN INDICATION
     Dosage: STOPPED BETWEEN THE 12 AND THE 16 NOV 2005.
     Route: 048
     Dates: end: 20051112
  7. LOVENOX [Suspect]
     Indication: HORMONE REPLACEMENT THERAPY
     Route: 065
     Dates: start: 20051109, end: 20051112
  8. SPASFON [Suspect]
     Indication: DRUG USE FOR UNKNOWN INDICATION
     Route: 065
  9. SOLU-MEDROL [Suspect]
     Indication: DRUG USE FOR UNKNOWN INDICATION
     Route: 065

REACTIONS (3)
  - CONDITION AGGRAVATED [None]
  - GENERAL PHYSICAL HEALTH DETERIORATION [None]
  - PANCYTOPENIA [None]
